FAERS Safety Report 21011219 (Version 2)
Quarter: 2022Q3

REPORT INFORMATION
  Report Type: Spontaneous
  Country: US (occurrence: US)
  Receive Date: 20220627
  Receipt Date: 20220705
  Transmission Date: 20221026
  Serious: Yes (Hospitalization, Other)
  Sender: FDA-Public Use
  Company Number: US-ELI_LILLY_AND_COMPANY-US202206008328

PATIENT
  Sex: Female

DRUGS (12)
  1. HUMALOG [Suspect]
     Active Substance: INSULIN LISPRO
     Indication: Type 2 diabetes mellitus
     Dosage: 15 U (VIA SLIDING SCALE)
     Route: 065
  2. HUMALOG [Suspect]
     Active Substance: INSULIN LISPRO
     Indication: Type 2 diabetes mellitus
     Dosage: 15 U (VIA SLIDING SCALE)
     Route: 065
  3. HUMALOG [Suspect]
     Active Substance: INSULIN LISPRO
     Dosage: 20 U, PRN (VIA SLIDING SCALE)
     Route: 065
  4. HUMALOG [Suspect]
     Active Substance: INSULIN LISPRO
     Dosage: 20 U, PRN (VIA SLIDING SCALE)
     Route: 065
  5. HUMALOG [Suspect]
     Active Substance: INSULIN LISPRO
     Dosage: 20 U, TID (W14-20 NUNITS WITH MEALS)
     Route: 065
  6. HUMALOG [Suspect]
     Active Substance: INSULIN LISPRO
     Dosage: 20 U, TID (W14-20 NUNITS WITH MEALS)
     Route: 065
  7. HUMALOG [Suspect]
     Active Substance: INSULIN LISPRO
     Dosage: 20 U, TID (W14-20 NUNITS WITH MEALS)
     Route: 065
  8. HUMALOG [Suspect]
     Active Substance: INSULIN LISPRO
     Dosage: 20 U, TID (W14-20 NUNITS WITH MEALS)
     Route: 065
  9. TRULICITY [Suspect]
     Active Substance: DULAGLUTIDE
     Indication: Diabetes mellitus
     Dosage: 1.5 MG, WEEKLY (1/W)
     Route: 065
  10. TRULICITY [Suspect]
     Active Substance: DULAGLUTIDE
     Dosage: 1.5 MG, WEEKLY (1/W)
     Route: 065
  11. LANTUS [Concomitant]
     Active Substance: INSULIN GLARGINE
     Indication: Type 2 diabetes mellitus
     Dosage: 46 U, UNKNOWN
     Route: 065
  12. LANTUS [Concomitant]
     Active Substance: INSULIN GLARGINE
     Dosage: 50 U, UNKNOWN
     Route: 065

REACTIONS (10)
  - Eye haemorrhage [Not Recovered/Not Resolved]
  - Weight increased [Not Recovered/Not Resolved]
  - Nephropathy [Unknown]
  - Cataract [Unknown]
  - Blood glucose increased [Recovered/Resolved]
  - Thinking abnormal [Unknown]
  - Glycosylated haemoglobin increased [Unknown]
  - Swelling [Not Recovered/Not Resolved]
  - Pruritus [Unknown]
  - Mouth ulceration [Unknown]
